FAERS Safety Report 17419925 (Version 1)
Quarter: 2020Q1

REPORT INFORMATION
  Report Type: Spontaneous
  Country: US (occurrence: US)
  Receive Date: 20200214
  Receipt Date: 20200214
  Transmission Date: 20200409
  Serious: Yes (Other)
  Sender: FDA-Public Use
  Company Number: US-INDIVIOR US-INDV-123540-2020

PATIENT
  Sex: Female

DRUGS (3)
  1. SUBOXONE [Suspect]
     Active Substance: BUPRENORPHINE HYDROCHLORIDE\NALOXONE HYDROCHLORIDE
     Dosage: CUTTING A 2 MG FILM INTO 8 SQUARES AND TAKING A SQUARE LIKE 0.25 MG, (COULD BE HALF OF 1 MG A DAY)
     Route: 065
  2. SUBOXONE [Suspect]
     Active Substance: BUPRENORPHINE HYDROCHLORIDE\NALOXONE HYDROCHLORIDE
     Indication: PAIN
     Dosage: UNK
     Route: 065
     Dates: start: 201011
  3. SUBOXONE [Suspect]
     Active Substance: BUPRENORPHINE HYDROCHLORIDE\NALOXONE HYDROCHLORIDE
     Dosage: DIFFERENT AND SUCCESSFUL ATTEMPTS OF TAPERING DOWN
     Route: 065

REACTIONS (10)
  - Intentional underdose [Not Recovered/Not Resolved]
  - Rib fracture [Unknown]
  - Fatigue [Recovered/Resolved]
  - Loss of consciousness [Recovered/Resolved]
  - Fall [Recovered/Resolved]
  - Drug withdrawal syndrome [Unknown]
  - Lower limb fracture [Unknown]
  - Anxiety [Recovered/Resolved]
  - Facial bones fracture [Unknown]
  - Wrong technique in product usage process [Not Recovered/Not Resolved]
